FAERS Safety Report 13690842 (Version 9)
Quarter: 2018Q1

REPORT INFORMATION
  Report Type: Spontaneous
  Country: US (occurrence: US)
  Receive Date: 20170626
  Receipt Date: 20180123
  Transmission Date: 20180508
  Serious: Yes (Hospitalization, Other)
  Sender: FDA-Public Use
  Company Number: US-CLOVIS ONCOLOGY-CLO-2017-000272

PATIENT
  Age: 67 Year
  Sex: Female

DRUGS (4)
  1. RUBRACA [Suspect]
     Active Substance: RUCAPARIB CAMSYLATE
     Dosage: 400 MG, BID
     Route: 048
     Dates: start: 20170408, end: 201712
  2. RUBRACA [Suspect]
     Active Substance: RUCAPARIB CAMSYLATE
     Dosage: 500 MG, BID
     Route: 048
     Dates: start: 20171221, end: 20180104
  3. RUBRACA [Suspect]
     Active Substance: RUCAPARIB CAMSYLATE
     Indication: OVARIAN CANCER
     Dosage: 600 MG, BID
     Route: 048
     Dates: start: 20170408, end: 20170627
  4. RUBRACA [Suspect]
     Active Substance: RUCAPARIB CAMSYLATE
     Dosage: 400 MG, BID
     Route: 048
     Dates: start: 201801

REACTIONS (20)
  - Bone marrow failure [Unknown]
  - Blood glucose fluctuation [Unknown]
  - Dyspnoea [Recovered/Resolved]
  - Fatigue [Recovering/Resolving]
  - Underdose [Unknown]
  - Glycosylated haemoglobin increased [Unknown]
  - Headache [Recovering/Resolving]
  - Dizziness [Unknown]
  - Nausea [Unknown]
  - Anaemia [Recovering/Resolving]
  - Blood count abnormal [Unknown]
  - Decreased appetite [Recovering/Resolving]
  - Upper respiratory tract infection [Unknown]
  - Urinary tract infection [Unknown]
  - Dizziness [Recovering/Resolving]
  - Dizziness [Recovered/Resolved]
  - Dysgeusia [Recovering/Resolving]
  - Palpitations [Recovered/Resolved]
  - Dyspnoea exertional [Unknown]
  - Asthenia [Recovering/Resolving]

NARRATIVE: CASE EVENT DATE: 2017
